FAERS Safety Report 6601116-1 (Version None)
Quarter: 2010Q1

REPORT INFORMATION
  Report Type: 
  Country: None (occurrence: None)
  Receive Date: 20100224
  Receipt Date: 20100224
  Transmission Date: 20100710
  Serious: Yes (Other)
  Sender: FDA-Public Use
  Company Number: None

PATIENT
  Sex: Female
  Weight: 72.5755 kg

DRUGS (4)
  1. LEVAQUIN [Suspect]
     Indication: BRONCHITIS
     Dosage: 500MG 1 DAY ORAL PILLS
     Route: 048
     Dates: start: 20100207
  2. LEVAQUIN [Suspect]
     Indication: BRONCHITIS
     Dosage: 500MG 1 DAY ORAL PILLS
     Route: 048
     Dates: start: 20100208
  3. LEVAQUIN [Suspect]
     Indication: BRONCHITIS
     Dosage: 500MG 1 DAY ORAL PILLS
     Route: 048
     Dates: start: 20100209
  4. LEVAQUIN [Suspect]
     Indication: BRONCHITIS
     Dosage: 500MG 1 DAY ORAL PILLS
     Route: 048
     Dates: start: 20100211

REACTIONS (10)
  - ANXIETY [None]
  - ASTHENIA [None]
  - DIZZINESS [None]
  - DYSKINESIA [None]
  - FEELING ABNORMAL [None]
  - HEADACHE [None]
  - SWOLLEN TONGUE [None]
  - SYNCOPE [None]
  - TACHYCARDIA [None]
  - TONGUE DISORDER [None]
